FAERS Safety Report 9307519 (Version 2)
Quarter: 2013Q4

REPORT INFORMATION
  Report Type: Spontaneous
  Country: US (occurrence: US)
  Receive Date: 20130524
  Receipt Date: 20131031
  Transmission Date: 20140711
  Serious: Yes (Other)
  Sender: FDA-Public Use
  Company Number: US-BAYER-2013-062635

PATIENT
  Age: 26 Year
  Sex: Female
  Weight: 113.38 kg

DRUGS (1)
  1. MIRENA [Suspect]
     Indication: CONTRACEPTION
     Dosage: 20 MCG/24HR, CONT
     Route: 015
     Dates: start: 20090420, end: 20110511

REACTIONS (10)
  - Uterine perforation [None]
  - Genital haemorrhage [None]
  - Abdominal pain [None]
  - Injury [None]
  - Pain [None]
  - Emotional distress [None]
  - Internal injury [None]
  - Anxiety [None]
  - Depression [None]
  - Medical device discomfort [None]
